FAERS Safety Report 5001796-0 (Version None)
Quarter: 2006Q2

REPORT INFORMATION
  Report Type: 
  Country: None (occurrence: None)
  Receive Date: 20060512
  Receipt Date: 20060512
  Transmission Date: 20061013
  Serious: Yes (Hospitalization)
  Sender: FDA-Public Use
  Company Number: None

PATIENT
  Age: 24 Year
  Sex: Female
  Weight: 56.6996 kg

DRUGS (1)
  1. ACCUTANE [Suspect]
     Indication: ACNE
     Dosage: 40 MG TWICE A DAY PO
     Route: 048
     Dates: start: 20040701, end: 20050528

REACTIONS (32)
  - ABDOMINAL PAIN LOWER [None]
  - CHEST DISCOMFORT [None]
  - CHILLS [None]
  - CONNECTIVE TISSUE DISORDER [None]
  - DEPRESSION [None]
  - DYSPNOEA [None]
  - EAR PAIN [None]
  - EPSTEIN-BARR VIRUS INFECTION [None]
  - FATIGUE [None]
  - FEELING ABNORMAL [None]
  - HERPES SIMPLEX [None]
  - INSOMNIA [None]
  - LYMPHADENOPATHY [None]
  - MALAISE [None]
  - MEMORY IMPAIRMENT [None]
  - MUCOUS MEMBRANE DISORDER [None]
  - MUSCULOSKELETAL CHEST PAIN [None]
  - NASAL CONGESTION [None]
  - NAUSEA [None]
  - PAIN [None]
  - PHARYNGOLARYNGEAL PAIN [None]
  - PRODUCTIVE COUGH [None]
  - RASH [None]
  - RHINORRHOEA [None]
  - STRABISMUS [None]
  - SYSTEMIC LUPUS ERYTHEMATOSUS [None]
  - THROAT IRRITATION [None]
  - TINNITUS [None]
  - TONSILLAR HYPERTROPHY [None]
  - TOTAL LUNG CAPACITY DECREASED [None]
  - VISION BLURRED [None]
  - WEIGHT INCREASED [None]
